FAERS Safety Report 7659705-1 (Version None)
Quarter: 2011Q3

REPORT INFORMATION
  Report Type: 
  Country: None (occurrence: None)
  Receive Date: 20110805
  Receipt Date: 20100813
  Transmission Date: 20111222
  Serious: No
  Sender: FDA-Public Use
  Company Number: US-ABBOTT-10P-163-0664162-00

PATIENT
  Sex: Male
  Weight: 85.352 kg

DRUGS (2)
  1. PRAVACHOL [Concomitant]
     Indication: BLOOD CHOLESTEROL
  2. DEPAKOTE ER [Suspect]
     Indication: NEUROPATHY PERIPHERAL
     Dates: start: 20100501

REACTIONS (1)
  - ERECTILE DYSFUNCTION [None]
